FAERS Safety Report 6334863-X (Version None)
Quarter: 2009Q3

REPORT INFORMATION
  Report Type: 
  Country: None (occurrence: None)
  Receive Date: 20090828
  Receipt Date: 20090828
  Transmission Date: 20100115
  Serious: Yes (Other)
  Sender: FDA-Public Use
  Company Number: None

PATIENT
  Age: 70 Year
  Sex: Female
  Weight: 62.5964 kg

DRUGS (6)
  1. HYDROCODONE BITARTRATE + ACETAMINOPHEN [Suspect]
     Indication: LIMB INJURY
     Dosage: 5MG./500MG. 1 TWICE DAILY BY MOUTH
     Route: 048
     Dates: start: 20090803
  2. HYDROCODONE BITARTRATE + ACETAMINOPHEN [Suspect]
     Indication: PAIN IN EXTREMITY
     Dosage: 5MG./500MG. 1 TWICE DAILY BY MOUTH
     Route: 048
     Dates: start: 20090803
  3. HYDROCODONE BITARTRATE + ACETAMINOPHEN [Suspect]
     Indication: LIMB INJURY
     Dosage: 5MG./500MG. 1 TWICE DAILY BY MOUTH
     Route: 048
     Dates: start: 20090804
  4. HYDROCODONE BITARTRATE + ACETAMINOPHEN [Suspect]
     Indication: PAIN IN EXTREMITY
     Dosage: 5MG./500MG. 1 TWICE DAILY BY MOUTH
     Route: 048
     Dates: start: 20090804
  5. HYDROCODONE BITARTRATE + ACETAMINOPHEN [Suspect]
     Indication: LIMB INJURY
     Dosage: 5MG./500MG. 1 TWICE DAILY BY MOUTH
     Route: 048
     Dates: start: 20090805
  6. HYDROCODONE BITARTRATE + ACETAMINOPHEN [Suspect]
     Indication: PAIN IN EXTREMITY
     Dosage: 5MG./500MG. 1 TWICE DAILY BY MOUTH
     Route: 048
     Dates: start: 20090805

REACTIONS (1)
  - POOR QUALITY SLEEP [None]
